FAERS Safety Report 19029030 (Version 1)
Quarter: 2021Q1

REPORT INFORMATION
  Report Type: Spontaneous
  Country: JP (occurrence: JP)
  Receive Date: 20210318
  Receipt Date: 20210318
  Transmission Date: 20210420
  Serious: Yes (Death, Other)
  Sender: FDA-Public Use
  Company Number: JP-ELI_LILLY_AND_COMPANY-JP202103006906

PATIENT
  Age: 64 Year
  Sex: Male

DRUGS (1)
  1. CYRAMZA [Suspect]
     Active Substance: RAMUCIRUMAB
     Indication: HEPATOCELLULAR CARCINOMA
     Dosage: UNK
     Route: 041
     Dates: start: 202008

REACTIONS (4)
  - Mallory-Weiss syndrome [Unknown]
  - Oesophageal varices haemorrhage [Unknown]
  - Malignant neoplasm progression [Fatal]
  - Hepatic failure [Unknown]

NARRATIVE: CASE EVENT DATE: 202010
